FAERS Safety Report 26207306 (Version 1)
Quarter: 2025Q4

REPORT INFORMATION
  Report Type: Spontaneous
  Country: EU (occurrence: EU)
  Receive Date: 20251229
  Receipt Date: 20251229
  Transmission Date: 20260117
  Serious: Yes (Other)
  Sender: JOHNSON AND JOHNSON
  Company Number: None

PATIENT
  Age: 82 Year
  Sex: Female
  Weight: 62 kg

DRUGS (17)
  1. DARZALEX [Suspect]
     Active Substance: DARATUMUMAB
     Indication: Plasma cell myeloma
     Dosage: 28-DAY CYCLE?CYCLES 1 AND 2: 1800 MG ON DAYS 1-8-15-21
     Route: 058
     Dates: start: 20220406, end: 20220601
  2. DARZALEX [Suspect]
     Active Substance: DARATUMUMAB
     Dosage: 28 DAY CYCLE?CYCLE 3-6: 1800 MG D1-D15
     Route: 058
     Dates: start: 20220607, end: 20220921
  3. DARZALEX [Suspect]
     Active Substance: DARATUMUMAB
     Dosage: 28-DAY CYCLE
     Route: 058
     Dates: start: 20221005
  4. LENALIDOMIDE [Suspect]
     Active Substance: LENALIDOMIDE
     Indication: Plasma cell myeloma
     Dosage: 28-DAY CYCLE. 21/28 DAYS
     Route: 048
     Dates: start: 20220406, end: 20221026
  5. LENALIDOMIDE [Suspect]
     Active Substance: LENALIDOMIDE
     Dosage: 28-DAY CYCLE. 21/28 DAYS
     Route: 048
     Dates: start: 20221102, end: 20230510
  6. LENALIDOMIDE [Suspect]
     Active Substance: LENALIDOMIDE
     Dosage: 28-DAY CYCLE. 21/28 DAYS
     Route: 048
     Dates: start: 20230517, end: 20240214
  7. LENALIDOMIDE [Suspect]
     Active Substance: LENALIDOMIDE
     Dosage: 28-DAY CYCLE. 21/28 DAYS
     Route: 048
     Dates: start: 20240221, end: 20240411
  8. LENALIDOMIDE [Suspect]
     Active Substance: LENALIDOMIDE
     Dosage: 28-DAY CYCLE. 21/28 DAYS
     Route: 048
     Dates: start: 20240418
  9. DEXAMETHASONE [Suspect]
     Active Substance: DEXAMETHASONE
     Indication: Plasma cell myeloma
     Route: 048
     Dates: start: 20220406, end: 20230322
  10. DEXAMETHASONE [Suspect]
     Active Substance: DEXAMETHASONE
     Route: 048
     Dates: start: 20230322
  11. ELIQIS 2.5 mg film-coated tablets [Concomitant]
     Indication: Ischaemic heart disease prophylaxis
     Route: 048
  12. BACTRIM [Concomitant]
     Active Substance: SULFAMETHOXAZOLE\TRIMETHOPRIM
     Indication: Opportunistic infection prophylaxis
     Route: 048
  13. VALACYCLOVIR HYDROCHLORIDE [Concomitant]
     Active Substance: VALACYCLOVIR HYDROCHLORIDE
     Indication: Opportunistic infection prophylaxis
     Route: 048
  14. LEUCOVORIN CALCIUM [Concomitant]
     Active Substance: LEUCOVORIN CALCIUM
     Indication: Vitamin supplementation
     Route: 048
  15. PAROXETINE (ANHYDROUS HYDROCHLORIDE OF) [Concomitant]
     Indication: Mixed anxiety and depressive disorder
     Route: 048
  16. DAPAGLIFLOZIN [Concomitant]
     Active Substance: DAPAGLIFLOZIN
     Indication: Product used for unknown indication
     Route: 048
  17. ESOMEPRAZOLE [Concomitant]
     Active Substance: ESOMEPRAZOLE
     Indication: Product used for unknown indication
     Route: 048

REACTIONS (1)
  - Carcinoma in situ of skin [Recovered/Resolved]

NARRATIVE: CASE EVENT DATE: 20250901
